FAERS Safety Report 22346192 (Version 1)
Quarter: 2023Q2

REPORT INFORMATION
  Report Type: Spontaneous
  Country: US (occurrence: None)
  Receive Date: 20230519
  Receipt Date: 20230519
  Transmission Date: 20230721
  Serious: Yes (Hospitalization)
  Sender: FDA-Public Use
  Company Number: US-FARMAPROD-202305-1348

PATIENT
  Sex: Female
  Weight: 42.54 kg

DRUGS (13)
  1. OXERVATE [Suspect]
     Active Substance: CENEGERMIN-BKBJ
     Indication: Hypoaesthesia eye
     Route: 047
     Dates: start: 20230417
  2. RESTASIS [Concomitant]
     Active Substance: CYCLOSPORINE
  3. METAMUCIL [Concomitant]
     Active Substance: PLANTAGO SEED
     Dosage: 3.4 G/12 G
  4. LEVOTHYROXINE [Concomitant]
     Active Substance: LEVOTHYROXINE
  5. MAALOX ADVANCED [Concomitant]
  6. ELIQUIS [Concomitant]
     Active Substance: APIXABAN
  7. POLYMYXIN B SULFATE\TRIMETHOPRIM [Concomitant]
     Active Substance: POLYMYXIN B SULFATE\TRIMETHOPRIM
  8. RISPERIDONE [Concomitant]
     Active Substance: RISPERIDONE
  9. VENLAFAXINE HCL [Concomitant]
     Active Substance: VENLAFAXINE HYDROCHLORIDE
  10. POLYETHYLENE GLYCOL 3350 [Concomitant]
     Active Substance: POLYETHYLENE GLYCOL 3350
  11. MIRTAZAPINE [Concomitant]
     Active Substance: MIRTAZAPINE
  12. GERI-LANTA [Concomitant]
     Dosage: 200-200-20
  13. MELATONIN [Concomitant]
     Active Substance: MELATONIN

REACTIONS (1)
  - Mental disorder [Not Recovered/Not Resolved]
